FAERS Safety Report 7570356-X (Version None)
Quarter: 2011Q2

REPORT INFORMATION
  Report Type: 
  Country: None (occurrence: None)
  Receive Date: 20110624
  Receipt Date: 20110609
  Transmission Date: 20111010
  Serious: Yes (Hospitalization)
  Sender: FDA-Public Use
  Company Number: DE-WATSON-2011-09196

PATIENT
  Age: 51 Year
  Sex: Male

DRUGS (3)
  1. SIMVASTATIN [Suspect]
     Indication: HYPERCHOLESTEROLAEMIA
     Dosage: 20 MG, DAILY
     Route: 048
  2. QUINAPRIL [Suspect]
     Indication: PRODUCT USED FOR UNKNOWN INDICATION
  3. SPIRONOLACTONE [Suspect]
     Indication: PRODUCT USED FOR UNKNOWN INDICATION

REACTIONS (15)
  - RENAL IMPAIRMENT [None]
  - CORONARY ARTERY OCCLUSION [None]
  - CORONARY ARTERY DISEASE [None]
  - DEHYDRATION [None]
  - MITRAL VALVE INCOMPETENCE [None]
  - BLOOD GLUCOSE INCREASED [None]
  - HAEMOGLOBIN DECREASED [None]
  - ATRIOVENTRICULAR BLOCK COMPLETE [None]
  - MYALGIA [None]
  - RHABDOMYOLYSIS [None]
  - HYPERKALAEMIA [None]
  - METABOLIC ACIDOSIS [None]
  - TRICUSPID VALVE INCOMPETENCE [None]
  - HAEMATOCRIT DECREASED [None]
  - DIARRHOEA [None]
